FAERS Safety Report 7368943-7 (Version None)
Quarter: 2011Q1

REPORT INFORMATION
  Report Type: 
  Country: None (occurrence: None)
  Receive Date: 20110323
  Receipt Date: 20110318
  Transmission Date: 20110831
  Serious: Yes (Other)
  Sender: FDA-Public Use
  Company Number: US-AMGEN-USASP2011015287

PATIENT
  Sex: Female

DRUGS (1)
  1. NPLATE [Suspect]
     Indication: IDIOPATHIC THROMBOCYTOPENIC PURPURA
     Dosage: 1500 A?G, UNK
     Dates: start: 20101115, end: 20110216

REACTIONS (2)
  - PLATELET COUNT ABNORMAL [None]
  - THERAPEUTIC RESPONSE DECREASED [None]
